FAERS Safety Report 9792483 (Version 1)
Quarter: 2014Q1

REPORT INFORMATION
  Report Type: Spontaneous
  Country: US (occurrence: US)
  Receive Date: 20140102
  Receipt Date: 20140102
  Transmission Date: 20141002
  Serious: Yes (Hospitalization)
  Sender: FDA-Public Use
  Company Number: PHEH2013US026501

PATIENT
  Sex: Female

DRUGS (8)
  1. AFINITOR [Suspect]
     Dosage: 10 MG, QD
     Dates: start: 20131209
  2. EXEMESTANE [Concomitant]
  3. LEVEMIR [Concomitant]
  4. NOVOLOG [Concomitant]
  5. METOPROLOL [Concomitant]
  6. DIAZEPAM [Concomitant]
  7. TEMAZEPAM [Concomitant]
  8. PRAVASTATIN [Concomitant]

REACTIONS (9)
  - Diabetes mellitus [Unknown]
  - Loss of consciousness [Unknown]
  - Influenza like illness [Unknown]
  - Heart rate increased [Unknown]
  - Lip swelling [Unknown]
  - Lip pain [Unknown]
  - Dyspnoea [Unknown]
  - Cough [Unknown]
  - Pyrexia [Recovered/Resolved]
